FAERS Safety Report 14540551 (Version 1)
Quarter: 2018Q1

REPORT INFORMATION
  Report Type: Spontaneous
  Country: FI (occurrence: FI)
  Receive Date: 20180216
  Receipt Date: 20180216
  Transmission Date: 20180509
  Serious: Yes (Disabling)
  Sender: FDA-Public Use
  Company Number: FI-OTSUKA-DJ20071667

PATIENT
  Age: 23 Year
  Sex: Female

DRUGS (2)
  1. LEPONEX [Concomitant]
     Active Substance: CLOZAPINE
     Route: 065
     Dates: start: 2001
  2. ABILIFY [Suspect]
     Active Substance: ARIPIPRAZOLE
     Indication: SCHIZOPHRENIA
     Route: 065
     Dates: start: 20061219

REACTIONS (2)
  - Eye disorder [Not Recovered/Not Resolved]
  - Muscle contracture [Not Recovered/Not Resolved]

NARRATIVE: CASE EVENT DATE: 20070518
